FAERS Safety Report 8027854-4 (Version None)
Quarter: 2012Q1

REPORT INFORMATION
  Report Type: 
  Country: None (occurrence: None)
  Receive Date: 20120106
  Receipt Date: 20111229
  Transmission Date: 20120608
  Serious: Yes (Hospitalization)
  Sender: FDA-Public Use
  Company Number: US-BAYER-2011-102958

PATIENT
  Age: 31 Year
  Sex: Female
  Weight: 72.562 kg

DRUGS (7)
  1. ACIPHEX [Concomitant]
     Indication: GASTROOESOPHAGEAL REFLUX DISEASE
     Dosage: UNK
     Dates: start: 20030101, end: 20100101
  2. NUVARING [Concomitant]
  3. MINOCYCLINE HYDROCHLORIDE [Concomitant]
     Dosage: 45 MG, QD
     Route: 048
  4. CARAFATE [Concomitant]
     Dosage: 1 G, QD
     Route: 048
  5. YAZ [Suspect]
     Dosage: UNK
     Dates: start: 20060101, end: 20080101
  6. ALBUTEROL [Concomitant]
     Dosage: UNK
     Dates: start: 20080101
  7. KAPIDEX [Concomitant]
     Dosage: 60 MG, BID
     Route: 048

REACTIONS (8)
  - DYSPEPSIA [None]
  - ABDOMINAL PAIN [None]
  - EMOTIONAL DISTRESS [None]
  - CHOLECYSTITIS ACUTE [None]
  - INJURY [None]
  - NAUSEA [None]
  - CHOLELITHIASIS [None]
  - DYSPNOEA [None]
